FAERS Safety Report 16839640 (Version 1)
Quarter: 2019Q3

REPORT INFORMATION
  Report Type: Spontaneous
  Country: TR (occurrence: BG)
  Receive Date: 20190923
  Receipt Date: 20190923
  Transmission Date: 20191005
  Serious: Yes (Other)
  Sender: FDA-Public Use
  Company Number: TR-BAYER-2019-164917

PATIENT
  Age: 52 Year
  Sex: Male
  Weight: 79 kg

DRUGS (1)
  1. NEXAVAR [Suspect]
     Active Substance: SORAFENIB
     Indication: HEPATOCELLULAR CARCINOMA
     Dosage: DAILY DOSE 800 MG
     Route: 048
     Dates: start: 20190822

REACTIONS (5)
  - Pain in extremity [Recovered/Resolved]
  - Erythema [Recovering/Resolving]
  - Metastases to lung [None]
  - Swelling [None]
  - Pain [None]

NARRATIVE: CASE EVENT DATE: 20190902
